FAERS Safety Report 17434719 (Version 3)
Quarter: 2021Q1

REPORT INFORMATION
  Report Type: Spontaneous
  Country: US (occurrence: US)
  Receive Date: 20200219
  Receipt Date: 20210331
  Transmission Date: 20210419
  Serious: Yes (Other)
  Sender: FDA-Public Use
  Company Number: US-PFIZER INC-2019001368

PATIENT
  Age: 66 Year
  Sex: Female

DRUGS (2)
  1. RAPAMUNE [Suspect]
     Active Substance: SIROLIMUS
     Indication: LIVER TRANSPLANT
     Dosage: 1 MG, ALTERNATE DAY (2 TABLETS ONCE DAILY EVERY OTHER DAY)
     Route: 048
  2. RAPAMUNE [Suspect]
     Active Substance: SIROLIMUS
     Dosage: 0.5 MG, ALTERNATE DAY (1 TABLET ONCE DAILY ON THE OPPOSITE DAYS)
     Route: 048

REACTIONS (2)
  - Off label use [Unknown]
  - Hernia [Unknown]
